FAERS Safety Report 6108089-9 (Version None)
Quarter: 2009Q1

REPORT INFORMATION
  Report Type: 
  Country: None (occurrence: None)
  Receive Date: 20090309
  Receipt Date: 20090225
  Transmission Date: 20090719
  Serious: Yes (Other)
  Sender: FDA-Public Use
  Company Number: JP-ROCHE-614938

PATIENT
  Sex: Male

DRUGS (2)
  1. TAMIFLU [Suspect]
     Indication: NASOPHARYNGITIS
     Dosage: DRUG: TAMIFLU CAPSULE
     Route: 048
     Dates: start: 20090202, end: 20090202
  2. TAMIFLU [Suspect]
     Route: 048
     Dates: start: 20090203, end: 20090205

REACTIONS (3)
  - ABNORMAL BEHAVIOUR [None]
  - CARDIAC FAILURE [None]
  - LIVER DISORDER [None]
